FAERS Safety Report 10010223 (Version 1)
Quarter: 2014Q1

REPORT INFORMATION
  Report Type: Report from Study
  Country: ZA (occurrence: ZA)
  Receive Date: 20140313
  Receipt Date: 20140313
  Transmission Date: 20141002
  Serious: Yes (Hospitalization, Other)
  Sender: FDA-Public Use
  Company Number: ZA-GILEAD-2014-0096260

PATIENT
  Age: 25 Year
  Sex: Female
  Weight: 79.4 kg

DRUGS (7)
  1. EMTRICITABINE/TENOFOVIR DISOPROXIL FUMARATE [Suspect]
     Indication: HIV INFECTION
     Dosage: 1 DF, QD
     Route: 048
     Dates: start: 20120905
  2. ATAZANAVIR [Suspect]
     Indication: HIV INFECTION
     Dosage: 300 MG, QD
     Route: 048
     Dates: start: 20120905
  3. RITONAVIR [Suspect]
     Indication: HIV INFECTION
     Dosage: 100 MG, QD
     Route: 048
     Dates: start: 20120905
  4. IRON SULFATE [Concomitant]
     Indication: MENORRHAGIA
     Dosage: UNK
     Dates: start: 20130422
  5. FOLIC ACID [Concomitant]
     Indication: MENORRHAGIA
     Dosage: UNK
     Route: 048
     Dates: start: 20130422
  6. IBUPROFEN [Concomitant]
     Indication: MENORRHAGIA
     Dosage: UNK
     Route: 048
     Dates: start: 20130422
  7. DEPO PROVERA [Concomitant]
     Indication: MENORRHAGIA
     Dosage: UNK
     Dates: start: 20130422

REACTIONS (1)
  - Pregnancy [Recovered/Resolved]
